FAERS Safety Report 14759392 (Version 2)
Quarter: 2018Q2

REPORT INFORMATION
  Report Type: Spontaneous
  Country: AT (occurrence: AT)
  Receive Date: 20180413
  Receipt Date: 20180418
  Transmission Date: 20180711
  Serious: Yes (Death, Other)
  Sender: FDA-Public Use
  Company Number: AT-ABBVIE-18P-009-2322597-00

PATIENT
  Age: 79 Year
  Sex: Male

DRUGS (1)
  1. VENCLYXTO [Suspect]
     Active Substance: VENETOCLAX
     Indication: ACUTE MYELOID LEUKAEMIA
     Dosage: FINAL DOSE: 100
     Route: 048
     Dates: start: 20180129, end: 20180213

REACTIONS (3)
  - Drug ineffective [Unknown]
  - Multiple organ dysfunction syndrome [Unknown]
  - Acute myeloid leukaemia [Fatal]
